FAERS Safety Report 22375846 (Version 1)
Quarter: 2023Q2

REPORT INFORMATION
  Report Type: Spontaneous
  Country: US (occurrence: US)
  Receive Date: 20230527
  Receipt Date: 20230527
  Transmission Date: 20230721
  Serious: No
  Sender: FDA-Public Use
  Company Number: US-PERRIGO-22US013565

PATIENT
  Age: 41 Year
  Sex: Male
  Weight: 97.506 kg

DRUGS (2)
  1. MINOXIDIL [Suspect]
     Active Substance: MINOXIDIL
     Indication: Alopecia
     Dosage: UNKNOWN, QHS
     Route: 061
     Dates: start: 20220826, end: 20220909
  2. MINOXIDIL [Suspect]
     Active Substance: MINOXIDIL
     Dosage: UNKNOWN, QHS
     Route: 061
     Dates: start: 20220913, end: 20220930

REACTIONS (6)
  - Application site pain [Recovered/Resolved]
  - Sensitive skin [Recovering/Resolving]
  - Application site discomfort [Recovering/Resolving]
  - Application site irritation [Recovered/Resolved]
  - Underdose [Recovered/Resolved]
  - Inappropriate schedule of product administration [Recovered/Resolved]

NARRATIVE: CASE EVENT DATE: 20220826
